FAERS Safety Report 23348218 (Version 1)
Quarter: 2023Q4

REPORT INFORMATION
  Report Type: Spontaneous
  Country: US (occurrence: US)
  Receive Date: 20231228
  Receipt Date: 20231228
  Transmission Date: 20240109
  Serious: Yes (Hospitalization)
  Sender: FDA-Public Use
  Company Number: US-MEDEXUS PHARMA, INC.-2023MED00544

PATIENT
  Age: 31 Year
  Sex: Female

DRUGS (1)
  1. RASUVO [Suspect]
     Active Substance: METHOTREXATE SODIUM
     Dosage: UNK INJECTED IN HER STOMACH OR THIGHT, EVERY 7 DAYS
     Route: 065

REACTIONS (5)
  - Mental disorder [Recovering/Resolving]
  - Product administered at inappropriate site [Recovered/Resolved]
  - Device malfunction [Not Recovered/Not Resolved]
  - Device breakage [Not Recovered/Not Resolved]
  - Device delivery system issue [Not Recovered/Not Resolved]

NARRATIVE: CASE EVENT DATE: 20231211
